FAERS Safety Report 23395770 (Version 2)
Quarter: 2024Q3

REPORT INFORMATION
  Report Type: Spontaneous
  Country: US (occurrence: US)
  Receive Date: 20240112
  Receipt Date: 20240920
  Transmission Date: 20241016
  Serious: No
  Sender: SANOFI AVENTIS
  Company Number: US-SA-SAC20240109000892

PATIENT
  Age: 52 Year
  Sex: Female
  Weight: 78.01 kg

DRUGS (1)
  1. DUPIXENT [Suspect]
     Active Substance: DUPILUMAB
     Indication: Dermatitis atopic
     Dosage: 300 MG, QOW
     Route: 058

REACTIONS (5)
  - Dry skin [Unknown]
  - Rash erythematous [Unknown]
  - Vision blurred [Unknown]
  - Injection site pain [Recovering/Resolving]
  - Dermatitis atopic [Unknown]
